FAERS Safety Report 9444488 (Version 1)
Quarter: 2013Q3

REPORT INFORMATION
  Report Type: Spontaneous
  Country: US (occurrence: None)
  Receive Date: 20130805
  Receipt Date: 20130805
  Transmission Date: 20140515
  Serious: Yes (Other)
  Sender: FDA-Public Use
  Company Number: 7226783

PATIENT
  Age: 58 Year
  Sex: Female

DRUGS (7)
  1. LEVOTHYROXINE (LEVOTHYROXINE) [Suspect]
     Dosage: 100MCG 1 IN 1 D
  2. ASPIRIN (ACETYLSALICYLIC ACID) [Suspect]
     Indication: PAIN
     Dosage: 325MG 1 IN 1 D
  3. PREDNISONE (PREDNISONE) [Suspect]
     Indication: PAIN
     Dosage: 10MG, 1 IN 1 D
  4. IBUPROFEN (IBUPROFEN) [Suspect]
     Indication: PAIN
     Dosage: 800MG AS REQUIRED
  5. CITALOPRAM (CITALOPRAM) [Concomitant]
  6. LOSARTAN (LOSARTAN) [Concomitant]
  7. OMEPRAZOLE (OMEPRAZOLE) [Concomitant]

REACTIONS (5)
  - Immune thrombocytopenic purpura [None]
  - Pulmonary embolism [None]
  - Gastrointestinal haemorrhage [None]
  - Helicobacter infection [None]
  - Anaemia [None]
